FAERS Safety Report 11012543 (Version 1)
Quarter: 2015Q2

REPORT INFORMATION
  Report Type: Spontaneous
  Country: US (occurrence: None)
  Receive Date: 20150410
  Receipt Date: 20150410
  Transmission Date: 20150821
  Serious: Yes (Disabling, Other)
  Sender: FDA-Public Use
  Company Number: None

PATIENT
  Age: 7 Year
  Sex: Male
  Weight: 19.05 kg

DRUGS (4)
  1. VITAMIN [Concomitant]
     Active Substance: VITAMINS
  2. SODIUM FLOURIDE [Concomitant]
     Active Substance: SODIUM FLUORIDE
  3. NASONEX - MOMETASONE FUROATE MONOHYDRATE [Concomitant]
  4. LEVOCETRIZINE [Suspect]
     Active Substance: LEVOCETIRIZINE
     Indication: SEASONAL ALLERGY
     Route: 048
     Dates: start: 20130925, end: 201501

REACTIONS (8)
  - Vomiting [None]
  - Epistaxis [None]
  - Abdominal pain upper [None]
  - Sleep terror [None]
  - Tic [None]
  - Nausea [None]
  - Hyperventilation [None]
  - Fear [None]

NARRATIVE: CASE EVENT DATE: 20141223
